FAERS Safety Report 6725491-2 (Version None)
Quarter: 2010Q2

REPORT INFORMATION
  Report Type: 
  Country: None (occurrence: None)
  Receive Date: 20100513
  Receipt Date: 20100513
  Transmission Date: 20101027
  Serious: Yes (Life-Threatening, Hospitalization)
  Sender: FDA-Public Use
  Company Number: None

PATIENT
  Age: 48 Year
  Sex: Female
  Weight: 122.0176 kg

DRUGS (1)
  1. DAPSONE [Suspect]
     Indication: DERMATITIS HERPETIFORMIS
     Dosage: 100MG ONCE A DAY 1 X DAILY
     Dates: start: 20080821, end: 20080917

REACTIONS (3)
  - HAEMOLYTIC ANAEMIA [None]
  - OXYGEN SATURATION DECREASED [None]
  - PANCREATITIS ACUTE [None]
